FAERS Safety Report 5660779-8 (Version None)
Quarter: 2008Q1

REPORT INFORMATION
  Report Type: 
  Country: None (occurrence: None)
  Receive Date: 20080311
  Receipt Date: 20080229
  Transmission Date: 20080703
  Serious: Yes (Other)
  Sender: FDA-Public Use
  Company Number: US-MERCK-0706USA03755

PATIENT
  Age: 57 Year
  Sex: Male

DRUGS (2)
  1. FOSAMAX [Suspect]
     Indication: OSTEITIS DEFORMANS
     Route: 048
     Dates: start: 20050210, end: 20060901
  2. FOSAMAX [Suspect]
     Indication: OSTEOARTHRITIS
     Route: 048
     Dates: start: 20050210, end: 20060901

REACTIONS (11)
  - CARDIOMEGALY [None]
  - DIZZINESS [None]
  - IRRITABLE BOWEL SYNDROME [None]
  - MACROCYTOSIS [None]
  - MENISCUS LESION [None]
  - OSTEOLYSIS [None]
  - PARAESTHESIA [None]
  - PERIODONTITIS [None]
  - PULMONARY FIBROSIS [None]
  - RIB FRACTURE [None]
  - TOOTH ABSCESS [None]
